FAERS Safety Report 7058755-6 (Version None)
Quarter: 2010Q4

REPORT INFORMATION
  Report Type: 
  Country: None (occurrence: None)
  Receive Date: 20101022
  Receipt Date: 20101011
  Transmission Date: 20110411
  Serious: Yes (Hospitalization)
  Sender: FDA-Public Use
  Company Number: US-MYLANLABS-2010S1018961

PATIENT
  Age: 12 Year
  Sex: Male

DRUGS (2)
  1. FLUVOXAMINE [Suspect]
     Indication: OBSESSIVE-COMPULSIVE DISORDER
     Dosage: TITRATED UP TO 150MG OVER 3 MONTHS
     Route: 065
     Dates: start: 20090401
  2. CLONAZEPAM [Concomitant]
     Indication: OBSESSIVE-COMPULSIVE DISORDER
     Route: 065
     Dates: start: 20081101

REACTIONS (1)
  - DISINHIBITION [None]
